FAERS Safety Report 8244809-5 (Version None)
Quarter: 2012Q1

REPORT INFORMATION
  Report Type: 
  Country: None (occurrence: None)
  Receive Date: 20120329
  Receipt Date: 20110503
  Transmission Date: 20120608
  Serious: No
  Sender: FDA-Public Use
  Company Number: US-MYLANLABS-2011S1009115

PATIENT
  Age: 59 Year
  Sex: Female

DRUGS (6)
  1. AMBIEN [Concomitant]
  2. KLONOPIN [Concomitant]
  3. FENTANYL-100 [Suspect]
     Indication: INTERVERTEBRAL DISC DEGENERATION
     Dosage: CHANGED Q72H
     Route: 062
     Dates: start: 20110401, end: 20110401
  4. APREPITANT [Concomitant]
  5. PROPRANOLOL HYDROCHLORIDE [Concomitant]
  6. FLEXERIL [Concomitant]

REACTIONS (1)
  - ALOPECIA [None]
